FAERS Safety Report 10166596 (Version 2)
Quarter: 2014Q2

REPORT INFORMATION
  Report Type: Spontaneous
  Country: IT (occurrence: None)
  Receive Date: 20140508
  Receipt Date: 20140624
  Transmission Date: 20141212
  Serious: Yes (Hospitalization)
  Sender: FDA-Public Use
  Company Number: AUR-APL-2014-05404

PATIENT
  Age: 69 Year
  Sex: Female

DRUGS (3)
  1. MIRTAZAPINA [Suspect]
     Indication: PRODUCT USED FOR UNKNOWN INDICATION
     Route: 048
     Dates: start: 20130918, end: 20130918
  2. DELORAZEPAM [Suspect]
     Indication: PRODUCT USED FOR UNKNOWN INDICATION
     Route: 048
     Dates: start: 20130918, end: 20130918
  3. VENLAFAXINE [Suspect]
     Indication: PRODUCT USED FOR UNKNOWN INDICATION
     Route: 048
     Dates: start: 20130918, end: 20130918

REACTIONS (10)
  - Drug abuse [None]
  - Agitation [None]
  - Fibrin D dimer increased [None]
  - Blood lactate dehydrogenase increased [None]
  - Blood creatinine increased [None]
  - Myoglobin blood increased [None]
  - Musculoskeletal pain [None]
  - Suicide attempt [None]
  - Drug abuse [None]
  - Drug abuse [None]
